FAERS Safety Report 22320134 (Version 1)
Quarter: 2023Q2

REPORT INFORMATION
  Report Type: Spontaneous
  Country: US (occurrence: None)
  Receive Date: 20230515
  Receipt Date: 20230515
  Transmission Date: 20230722
  Serious: No
  Sender: FDA-Public Use
  Company Number: US-Unichem Pharmaceuticals (USA) Inc-UCM202302-000179

PATIENT
  Age: 80 Year
  Sex: Female

DRUGS (4)
  1. ZONISAMIDE [Suspect]
     Active Substance: ZONISAMIDE
     Indication: Migraine
     Dates: start: 202208
  2. ZONISAMIDE [Suspect]
     Active Substance: ZONISAMIDE
     Dosage: GRADUALLY DECREASE
  3. ZONISAMIDE [Suspect]
     Active Substance: ZONISAMIDE
  4. ZONISAMIDE [Suspect]
     Active Substance: ZONISAMIDE
     Dosage: INCREASE THE DOSE WITH UNKNOWN STRENGTH

REACTIONS (8)
  - Balance disorder [Unknown]
  - Paraesthesia [Unknown]
  - Feeling abnormal [Unknown]
  - Headache [Unknown]
  - Hypertension [Unknown]
  - Dizziness [Unknown]
  - Withdrawal syndrome [Unknown]
  - Off label use [Unknown]
